FAERS Safety Report 14133334 (Version 11)
Quarter: 2024Q4

REPORT INFORMATION
  Report Type: Report from Study
  Country: DE (occurrence: DE)
  Receive Date: 20171026
  Receipt Date: 20241209
  Transmission Date: 20250115
  Serious: Yes (Hospitalization)
  Sender: BRISTOL-MYERS SQUIBB COMPANY
  Company Number: DE-BRISTOL-MYERS SQUIBB COMPANY-BMS-2017-042889

PATIENT
  Age: 63 Year
  Sex: Male

DRUGS (5)
  1. NIVOLUMAB [Suspect]
     Active Substance: NIVOLUMAB
     Indication: Malignant melanoma
     Dosage: 90 MG, Q3WK
     Route: 042
     Dates: start: 20170508, end: 20170725
  2. NIVOLUMAB [Suspect]
     Active Substance: NIVOLUMAB
     Dosage: 90 MG, Q3WK
     Route: 042
     Dates: start: 20170508, end: 20171106
  3. NIVOLUMAB [Suspect]
     Active Substance: NIVOLUMAB
     Dates: start: 20180305, end: 20180511
  4. IPILIMUMAB [Suspect]
     Active Substance: IPILIMUMAB
     Indication: Malignant melanoma
     Dosage: 270 MG, Q3WK
     Dates: start: 20170508, end: 20170808
  5. IPILIMUMAB [Suspect]
     Active Substance: IPILIMUMAB
     Dosage: 240 MILLIGRAM, Q3WK
     Dates: start: 20170508, end: 20170725

REACTIONS (5)
  - Gastritis [Recovered/Resolved]
  - Nausea [Recovered/Resolved]
  - Enzyme level increased [Not Recovered/Not Resolved]
  - Spleen disorder [Recovered/Resolved]
  - Headache [Recovered/Resolved]

NARRATIVE: CASE EVENT DATE: 20170511
